FAERS Safety Report 17945858 (Version 2)
Quarter: 2020Q3

REPORT INFORMATION
  Report Type: Spontaneous
  Country: ES (occurrence: ES)
  Receive Date: 20200625
  Receipt Date: 20200708
  Transmission Date: 20201103
  Serious: Yes (Hospitalization, Other)
  Sender: FDA-Public Use
  Company Number: ES-AMGEN-ESPSP2020099393

PATIENT
  Age: 58 Year
  Sex: Female

DRUGS (8)
  1. CARFILZOMIB [Suspect]
     Active Substance: CARFILZOMIB
     Dosage: 27 MILLIGRAM/SQ. METER (DAYS 1,2,8,9,15,16)
     Route: 042
     Dates: start: 20200109
  2. CARFILZOMIB [Suspect]
     Active Substance: CARFILZOMIB
     Dosage: 27 MILLIGRAM/SQ. METER (DAYS 8,9,15,16 CYCLES 1?12, AND DAYS 1,2,15,16 CYCLES 13?18)
     Route: 042
     Dates: start: 20191021
  3. CARFILZOMIB [Suspect]
     Active Substance: CARFILZOMIB
     Indication: PLASMA CELL MYELOMA
     Dosage: 20 MILLIGRAM/SQ. METER  (DAYS 1,2)
     Route: 042
     Dates: start: 20191021
  4. CARFILZOMIB [Suspect]
     Active Substance: CARFILZOMIB
     Dosage: 27 MILLIGRAM/SQ. METER (DAYS 1,2,8,9,15,16)
     Route: 042
     Dates: start: 20200210
  5. REVLIMID [Concomitant]
     Active Substance: LENALIDOMIDE
     Indication: PLASMA CELL MYELOMA
     Dosage: 25 MILLIGRAM DAYS 1?21
     Route: 065
  6. CARFILZOMIB [Suspect]
     Active Substance: CARFILZOMIB
     Dosage: 27 MILLIGRAM/SQ. METER (DAYS 1,2,8,9)
     Route: 042
     Dates: start: 20200309
  7. DEXAMETHASONE. [Concomitant]
     Active Substance: DEXAMETHASONE
     Indication: PLASMA CELL MYELOMA
     Dosage: 40 MILLIGRAMDAYS 1,8,15,22
     Route: 065
     Dates: start: 20191012
  8. CARFILZOMIB [Suspect]
     Active Substance: CARFILZOMIB
     Dosage: 36 MILLIGRAM/SQ. METER, ON DAYS 1,2
     Route: 042
     Dates: start: 20191219

REACTIONS (5)
  - Pancytopenia [Unknown]
  - COVID-19 [Recovered/Resolved]
  - Staphylococcal bacteraemia [Unknown]
  - Encephalopathy [Unknown]
  - Plasma cell myeloma [Unknown]

NARRATIVE: CASE EVENT DATE: 2019
